FAERS Safety Report 22614793 (Version 1)
Quarter: 2023Q2

REPORT INFORMATION
  Report Type: Spontaneous
  Country: AU (occurrence: AU)
  Receive Date: 20230619
  Receipt Date: 20230619
  Transmission Date: 20230721
  Serious: Yes (Other)
  Sender: FDA-Public Use
  Company Number: None

PATIENT
  Sex: Male

DRUGS (14)
  1. DOXORUBICIN [Suspect]
     Active Substance: DOXORUBICIN
     Indication: Hodgkin^s disease
     Dosage: 60 MILLIGRAM, CYCLICAL, DAY 8 (MOPP/ABV)
     Route: 065
     Dates: start: 1996
  2. DOXORUBICIN [Suspect]
     Active Substance: DOXORUBICIN
     Indication: Metastases to thorax
  3. PREDNISOLONE [Suspect]
     Active Substance: PREDNISOLONE
     Indication: Hodgkin^s disease
     Dosage: 490 MILLIGRAM, CYCLICAL, 35 MG ORAL, DAYS 1-14 MONTHLY (MOPP/ABV)
     Route: 048
     Dates: start: 1996
  4. PREDNISOLONE [Suspect]
     Active Substance: PREDNISOLONE
     Indication: Metastases to thorax
  5. VINCRISTINE [Suspect]
     Active Substance: VINCRISTINE
     Indication: Hodgkin^s disease
     Dosage: 2.4 MILLIGRAM, CYCLICAL, MONTHLY (MOPP/ABV)
     Route: 042
     Dates: start: 1996
  6. VINCRISTINE [Suspect]
     Active Substance: VINCRISTINE
     Indication: Metastases to thorax
  7. VINBLASTINE [Suspect]
     Active Substance: VINBLASTINE
     Indication: Metastases to thorax
     Dosage: 10.2 MILLIGRAM, CYCLICAL, DAY 8 (MOPP/ABV)
     Route: 042
     Dates: start: 1996
  8. VINBLASTINE [Suspect]
     Active Substance: VINBLASTINE
     Indication: Hodgkin^s disease
  9. BLEOMYCIN [Suspect]
     Active Substance: BLEOMYCIN SULFATE
     Indication: Metastases to thorax
     Dosage: 17 MILLIGRAM, CYCLICAL, DAY 8 (MOPP/ABV)
     Route: 065
     Dates: start: 1996
  10. BLEOMYCIN [Suspect]
     Active Substance: BLEOMYCIN SULFATE
     Indication: Hodgkin^s disease
  11. NITROGEN MUSTARD [Suspect]
     Active Substance: MECHLORETHAMINE OXIDE HYDROCHLORIDE
     Indication: Hodgkin^s disease
     Dosage: 10.2 MILLIGRAM, CYCLICAL, MONTHLY (MOPP/ABV)
     Route: 042
     Dates: start: 1996
  12. NITROGEN MUSTARD [Suspect]
     Active Substance: MECHLORETHAMINE OXIDE HYDROCHLORIDE
     Indication: Metastases to thorax
  13. PROCARBAZINE [Suspect]
     Active Substance: PROCARBAZINE
     Indication: Hodgkin^s disease
     Dosage: 1225 MILLIGRAM, CYCLICAL, 175 MG, DAYS 1-7 (MOPP/ABV)
     Route: 048
     Dates: start: 1996
  14. PROCARBAZINE [Suspect]
     Active Substance: PROCARBAZINE
     Indication: Metastases to thorax

REACTIONS (2)
  - Blood follicle stimulating hormone increased [Not Recovered/Not Resolved]
  - Azoospermia [Not Recovered/Not Resolved]
